FAERS Safety Report 8136937-X (Version None)
Quarter: 2012Q1

REPORT INFORMATION
  Report Type: 
  Country: None (occurrence: None)
  Receive Date: 20120214
  Receipt Date: 20120208
  Transmission Date: 20120608
  Serious: Yes (Disabling)
  Sender: FDA-Public Use
  Company Number: US-MERCK-1202USA01652

PATIENT
  Sex: Female

DRUGS (1)
  1. MEVACOR [Suspect]
     Route: 048

REACTIONS (1)
  - ABASIA [None]
